FAERS Safety Report 5389040-6 (Version None)
Quarter: 2007Q3

REPORT INFORMATION
  Report Type: 
  Country: None (occurrence: None)
  Receive Date: 20070717
  Receipt Date: 20070710
  Transmission Date: 20080115
  Serious: Yes (Other)
  Sender: FDA-Public Use
  Company Number: HQWYE018912JUL07

PATIENT
  Age: 26 Year
  Sex: Female
  Weight: 145.28 kg

DRUGS (2)
  1. ADVIL PM [Suspect]
     Indication: INSOMNIA
     Dosage: 4 CAPLETS EVERY 2 HOURS
     Route: 048
  2. ADVIL PM [Suspect]
     Indication: ANALGESIA

REACTIONS (2)
  - DRUG ABUSER [None]
  - OVERDOSE [None]
